FAERS Safety Report 10765337 (Version 4)
Quarter: 2015Q2

REPORT INFORMATION
  Report Type: Spontaneous
  Country: US (occurrence: US)
  Receive Date: 20150205
  Receipt Date: 20150616
  Transmission Date: 20150821
  Serious: Yes (Death, Hospitalization, Other)
  Sender: FDA-Public Use
  Company Number: US-ASTRAZENECA-2015SE09960

PATIENT
  Age: 24892 Day
  Sex: Male
  Weight: 103.4 kg

DRUGS (22)
  1. CYCLOBENZAPRINE [Concomitant]
     Active Substance: CYCLOBENZAPRINE
     Route: 048
     Dates: start: 20031126
  2. NITROQUICK [Concomitant]
     Active Substance: NITROGLYCERIN
     Route: 060
     Dates: start: 20030415
  3. BISOPROLOL [Concomitant]
     Active Substance: BISOPROLOL
     Dates: start: 20071029
  4. ZEBETA [Concomitant]
     Active Substance: BISOPROLOL FUMARATE
     Route: 048
  5. DOXYCYCLINE HYCLATE. [Concomitant]
     Active Substance: DOXYCYCLINE HYCLATE
     Route: 048
     Dates: start: 20071227
  6. HYDROMORPHONE HCL [Concomitant]
     Active Substance: HYDROMORPHONE HYDROCHLORIDE
     Route: 048
     Dates: start: 20071211
  7. AMOXICILLIN. [Concomitant]
     Active Substance: AMOXICILLIN
     Dosage: 4 CAP 1 HR PROIR AND 2 CAP 6 HRS AFTER PROCEDURE
     Route: 048
     Dates: start: 20051010
  8. LEVAQUIN [Concomitant]
     Active Substance: LEVOFLOXACIN
     Route: 048
     Dates: start: 20031219
  9. METFORMIN [Concomitant]
     Active Substance: METFORMIN HYDROCHLORIDE
     Dates: start: 20071029
  10. VIAGRA [Concomitant]
     Active Substance: SILDENAFIL CITRATE
     Route: 065
     Dates: start: 20060621
  11. BYETTA [Suspect]
     Active Substance: EXENATIDE
     Indication: TYPE 2 DIABETES MELLITUS
     Dosage: 10 MCG. TAKE 15 MINUTES PRIOR TO BREAKFAST AND SUPPER.
     Route: 065
     Dates: start: 20070713
  12. PROCHLORPERAZINE. [Concomitant]
     Active Substance: PROCHLORPERAZINE
     Route: 048
     Dates: start: 20080227
  13. DYAZIDE [Concomitant]
     Active Substance: HYDROCHLOROTHIAZIDE\TRIAMTERENE
     Dosage: 37.5/25 DAILY
     Dates: start: 20071029
  14. ZOCOR [Concomitant]
     Active Substance: SIMVASTATIN
     Dates: start: 20071029
  15. JANUVIA [Suspect]
     Active Substance: SITAGLIPTIN PHOSPHATE
     Indication: TYPE 2 DIABETES MELLITUS
     Route: 065
     Dates: start: 2007, end: 20070716
  16. JANUVIA [Suspect]
     Active Substance: SITAGLIPTIN PHOSPHATE
     Indication: TYPE 2 DIABETES MELLITUS
     Route: 048
     Dates: start: 20070417
  17. FENTANYL. [Concomitant]
     Active Substance: FENTANYL
     Dosage: 50 MCG Q 72 H
     Route: 065
     Dates: start: 20071116
  18. NASONEX [Concomitant]
     Active Substance: MOMETASONE FUROATE
     Dosage: 50 MCG, 120 INH 17 GM
     Route: 045
     Dates: start: 20021021
  19. ALTACE [Concomitant]
     Active Substance: RAMIPRIL
     Dates: start: 20071029
  20. LEVEMIR [Concomitant]
     Active Substance: INSULIN DETEMIR
     Route: 065
     Dates: start: 20070713
  21. NOVOLOG [Concomitant]
     Active Substance: INSULIN ASPART
     Dosage: 100 UNITS AT BEDTIME
     Dates: start: 20071029
  22. AVELOX [Concomitant]
     Active Substance: MOXIFLOXACIN HYDROCHLORIDE
     Route: 048
     Dates: start: 20080307

REACTIONS (4)
  - Pancreatic carcinoma [Fatal]
  - Hepatic mass [Unknown]
  - Jaundice cholestatic [Unknown]
  - Pulmonary mass [Unknown]

NARRATIVE: CASE EVENT DATE: 20071027
